FAERS Safety Report 6250533-0 (Version None)
Quarter: 2009Q2

REPORT INFORMATION
  Report Type: 
  Country: None (occurrence: None)
  Receive Date: 20090630
  Receipt Date: 20090625
  Transmission Date: 20091009
  Serious: Yes (Hospitalization)
  Sender: FDA-Public Use
  Company Number: US-ASTRAZENECA-2007UW10971

PATIENT
  Age: 61 Year
  Sex: Female
  Weight: 97.5 kg

DRUGS (2)
  1. SEROQUEL [Suspect]
     Dosage: 50 - 100 MG
     Route: 048
     Dates: start: 20001206, end: 20060301
  2. METHADONE [Concomitant]

REACTIONS (4)
  - CARDIAC OPERATION [None]
  - LIMB OPERATION [None]
  - MALAISE [None]
  - TYPE 2 DIABETES MELLITUS [None]
